FAERS Safety Report 25242364 (Version 1)
Quarter: 2025Q2

REPORT INFORMATION
  Report Type: Spontaneous
  Country: US (occurrence: US)
  Receive Date: 20250428
  Receipt Date: 20250428
  Transmission Date: 20250717
  Serious: Yes (Other)
  Sender: TAKEDA
  Company Number: US-TAKEDA-2025TUS039402

PATIENT
  Age: 64 Year
  Sex: Female
  Weight: 54 kg

DRUGS (4)
  1. GAMMAGARD LIQUID [Suspect]
     Active Substance: HUMAN IMMUNOGLOBULIN G
     Indication: Secondary immunodeficiency
     Dosage: 40 GRAM, Q4WEEKS
     Dates: end: 20250401
  2. GAMMAGARD LIQUID [Suspect]
     Active Substance: HUMAN IMMUNOGLOBULIN G
     Indication: Hypogammaglobulinaemia
  3. GAMMAGARD S/D [Suspect]
     Active Substance: HUMAN IMMUNOGLOBULIN G
     Indication: Product used for unknown indication
  4. GAMMAGARD S/D [Suspect]
     Active Substance: HUMAN IMMUNOGLOBULIN G

REACTIONS (13)
  - Pneumonia [Recovering/Resolving]
  - COVID-19 [Recovering/Resolving]
  - Nasopharyngitis [Recovering/Resolving]
  - Epstein-Barr virus infection [Recovering/Resolving]
  - Cytomegalovirus infection [Recovering/Resolving]
  - Beta haemolytic streptococcal infection [Recovering/Resolving]
  - Parvovirus B19 infection [Recovering/Resolving]
  - Protein total increased [Unknown]
  - Pain [Recovering/Resolving]
  - Influenza [Recovering/Resolving]
  - Myalgia [Not Recovered/Not Resolved]
  - Pyrexia [Recovering/Resolving]
  - Fatigue [Not Recovered/Not Resolved]

NARRATIVE: CASE EVENT DATE: 20241001
